FAERS Safety Report 4738738-9 (Version None)
Quarter: 2005Q3

REPORT INFORMATION
  Report Type: 
  Country: None (occurrence: None)
  Receive Date: 20050804
  Receipt Date: 20050727
  Transmission Date: 20060218
  Serious: Yes (Hospitalization)
  Sender: FDA-Public Use
  Company Number: SU-2005-003765

PATIENT
  Age: 93 Year
  Sex: Female

DRUGS (9)
  1. OLMETEC [Suspect]
     Dosage: 20 MG QD PO
     Route: 048
     Dates: end: 20050214
  2. NEXIUM [Suspect]
     Dosage: 40 MG QD PO
     Route: 048
     Dates: start: 20050210, end: 20050214
  3. CLAMOXYL /NET/ [Suspect]
     Dosage: 3 G QD PO
     Route: 048
     Dates: start: 20050208, end: 20050214
  4. EUPANTOL [Suspect]
     Dosage: 40 MG QD IV
     Route: 042
     Dates: start: 20050129, end: 20050130
  5. LEVOTHYROX [Concomitant]
  6. ACETAMINOPHEN [Concomitant]
  7. TARDYFERON /GFR/ [Concomitant]
  8. DIANTALVIC [Concomitant]
  9. XANAX [Concomitant]

REACTIONS (10)
  - DUODENAL ULCER [None]
  - FEMUR FRACTURE [None]
  - GASTROINTESTINAL HAEMORRHAGE [None]
  - GENERAL PHYSICAL HEALTH DETERIORATION [None]
  - INFLAMMATION [None]
  - IRON DEFICIENCY ANAEMIA [None]
  - OVERDOSE [None]
  - POST PROCEDURAL COMPLICATION [None]
  - RENAL FAILURE ACUTE [None]
  - URINARY TRACT INFECTION [None]
